FAERS Safety Report 7567930-3 (Version None)
Quarter: 2011Q2

REPORT INFORMATION
  Report Type: 
  Country: None (occurrence: None)
  Receive Date: 20110623
  Receipt Date: 20110613
  Transmission Date: 20111010
  Serious: Yes (Other)
  Sender: FDA-Public Use
  Company Number: IN-SANOFI-AVENTIS-2011SA037867

PATIENT
  Age: 5 Year
  Sex: Male

DRUGS (8)
  1. PYRAZINAMIDE [Suspect]
     Route: 048
  2. PREDNISOLONE [Concomitant]
     Route: 048
  3. PHENYTOIN [Concomitant]
     Route: 048
  4. RIFAMPICIN [Suspect]
     Route: 048
  5. ETHAMBUTOL HYDROCHLORIDE [Suspect]
     Route: 048
  6. PREDNISOLONE [Concomitant]
     Dosage: DIVIDED DOSES.
     Route: 048
  7. ISONIAZID [Suspect]
     Route: 048
  8. PREDNISOLONE [Concomitant]
     Dosage: TAPERING DOSE
     Route: 048

REACTIONS (4)
  - VISION BLURRED [None]
  - VISUAL IMPAIRMENT [None]
  - BLINDNESS [None]
  - OPTIC NEURITIS [None]
